FAERS Safety Report 12991668 (Version 1)
Quarter: 2016Q4

REPORT INFORMATION
  Report Type: Spontaneous
  Country: US (occurrence: US)
  Receive Date: 20161201
  Receipt Date: 20161201
  Transmission Date: 20170207
  Serious: No
  Sender: FDA-Public Use
  Company Number: US-009507513-1611USA009127

PATIENT

DRUGS (1)
  1. INTRON A [Suspect]
     Active Substance: INTERFERON ALFA-2B
     Dosage: UNK

REACTIONS (3)
  - No adverse event [Unknown]
  - Product quality issue [Unknown]
  - Intentional product misuse [Unknown]
